FAERS Safety Report 9677711 (Version 1)
Quarter: 2013Q4

REPORT INFORMATION
  Report Type: Spontaneous
  Country: IT (occurrence: IT)
  Receive Date: 20131108
  Receipt Date: 20131108
  Transmission Date: 20140711
  Serious: Yes (Other)
  Sender: FDA-Public Use
  Company Number: IT-TEVA-441840ISR

PATIENT
  Age: 67 Year
  Sex: Male

DRUGS (7)
  1. FLUOROURACILE TEVA [Suspect]
     Indication: ADENOCARCINOMA OF COLON
     Dosage: 736 MILLIGRAM DAILY; CONCENTRATE FOR INTRAVENOUS INFUSION
     Route: 040
     Dates: start: 20130226
  2. FLUOROURACILE TEVA [Suspect]
     Dosage: 1104 MILLIGRAM DAILY;
     Route: 041
     Dates: start: 20130226
  3. ERBITUX [Suspect]
     Indication: ADENOCARCINOMA OF COLON
     Dosage: 460 MILLIGRAM DAILY; CONCENTRATE FOR INTRAVENOUS INFUSION
     Route: 040
     Dates: start: 20130226
  4. IRINOTECAN HOSPIRA [Suspect]
     Indication: ADENOCARCINOMA OF COLON
     Dosage: 331.2 MILLIGRAM DAILY; CONCENTRATE FOR INTRAVENOUS INFUSION
     Route: 042
     Dates: start: 20130226
  5. ONDANSETRON HIKMA [Concomitant]
     Indication: PROPHYLAXIS OF NAUSEA AND VOMITING
  6. SOLDESAM [Concomitant]
     Indication: PROPHYLAXIS OF NAUSEA AND VOMITING
  7. RANIDIL [Concomitant]

REACTIONS (9)
  - Pyrexia [Unknown]
  - Epistaxis [Unknown]
  - Rash [Unknown]
  - Diarrhoea [Unknown]
  - Paraesthesia [Unknown]
  - Muscle spasms [Unknown]
  - Stomatitis [Unknown]
  - Asthenia [Unknown]
  - Rash [Unknown]
